FAERS Safety Report 14144448 (Version 2)
Quarter: 2018Q1

REPORT INFORMATION
  Report Type: Spontaneous
  Country: US (occurrence: US)
  Receive Date: 20171031
  Receipt Date: 20180105
  Transmission Date: 20180508
  Serious: No
  Sender: FDA-Public Use
  Company Number: US-009507513-1710USA007635

PATIENT
  Sex: Male

DRUGS (13)
  1. OMEGA-3 MARINE TRIGLYCERIDES [Concomitant]
     Active Substance: FISH OIL
     Dosage: UNK
  2. MELOXICAM. [Concomitant]
     Active Substance: MELOXICAM
     Dosage: UNK
  3. VALCYTE [Concomitant]
     Active Substance: VALGANCICLOVIR HYDROCHLORIDE
     Dosage: UNK
  4. VITAMIN D [Concomitant]
     Active Substance: CHOLECALCIFEROL
     Dosage: UNK
  5. TRIAMCINOLONE [Concomitant]
     Active Substance: TRIAMCINOLONE
     Dosage: UNK
  6. DHEA [Concomitant]
     Active Substance: PRASTERONE
     Dosage: UNK
  7. VALSTAR [Concomitant]
     Active Substance: VALRUBICIN
     Dosage: UNK
  8. INTRON A [Suspect]
     Active Substance: INTERFERON ALFA-2B
     Dosage: 2 ML, 3 TIMES A WEEK
     Route: 058
     Dates: start: 20170819
  9. ASPIRIN. [Concomitant]
     Active Substance: ASPIRIN
     Dosage: UNK
  10. GABAPENTIN. [Concomitant]
     Active Substance: GABAPENTIN
     Dosage: UNK
  11. URSODIOL. [Concomitant]
     Active Substance: URSODIOL
  12. CALCIUM (UNSPECIFIED) [Concomitant]
     Active Substance: CALCIUM
     Dosage: UNK
  13. INTRON A [Suspect]
     Active Substance: INTERFERON ALFA-2B
     Dosage: 10 U, 3 TIMES A WEEK
     Route: 058
     Dates: start: 20170819

REACTIONS (2)
  - Fatigue [Unknown]
  - Rash [Not Recovered/Not Resolved]

NARRATIVE: CASE EVENT DATE: 2017
